FAERS Safety Report 17903292 (Version 1)
Quarter: 2020Q2

REPORT INFORMATION
  Report Type: Spontaneous
  Country: US (occurrence: US)
  Receive Date: 20200616
  Receipt Date: 20200616
  Transmission Date: 20200714
  Serious: No
  Sender: FDA-Public Use
  Company Number: US-FRESENIUS KABI-FK202005984

PATIENT
  Age: 67 Year
  Sex: Female

DRUGS (1)
  1. SODIUM ACETATE INJECTION, USP [Suspect]
     Active Substance: SODIUM ACETATE
     Indication: PARENTERAL NUTRITION
     Dosage: UNK
     Route: 065

REACTIONS (1)
  - Palpitations [Unknown]
